FAERS Safety Report 24873911 (Version 1)
Quarter: 2025Q1

REPORT INFORMATION
  Report Type: Spontaneous
  Country: US (occurrence: None)
  Receive Date: 20250121
  Receipt Date: 20250121
  Transmission Date: 20250409
  Serious: No
  Sender: FDA-CTU
  Company Number: None

PATIENT
  Age: 60 Year
  Sex: Female
  Weight: 69.3 kg

DRUGS (9)
  1. EMGALITY [Suspect]
     Active Substance: GALCANEZUMAB-GNLM
     Indication: Migraine
     Dates: start: 20231121, end: 20241202
  2. BUPROPION [Concomitant]
     Active Substance: BUPROPION
  3. SUMATRIPTAN [Concomitant]
     Active Substance: SUMATRIPTAN
  4. SYNTHROID [Concomitant]
     Active Substance: LEVOTHYROXINE SODIUM
  5. FLUTICASONE [Concomitant]
     Active Substance: FLUTICASONE
  6. UBRELVY [Concomitant]
     Active Substance: UBROGEPANT
  7. estrogen/progesterone compounded hormone replacement daily [Concomitant]
  8. VITAMINS [Concomitant]
     Active Substance: VITAMINS
  9. Cal/Mag [Concomitant]

REACTIONS (3)
  - Depression [None]
  - Weight increased [None]
  - Constipation [None]

NARRATIVE: CASE EVENT DATE: 20240601
